FAERS Safety Report 25169879 (Version 2)
Quarter: 2025Q3

REPORT INFORMATION
  Report Type: Spontaneous
  Country: US (occurrence: US)
  Receive Date: 20250407
  Receipt Date: 20250926
  Transmission Date: 20251020
  Serious: No
  Sender: MERCK SHARP & DOHME LLC
  Company Number: US-009507513-2265220

PATIENT
  Sex: Female
  Weight: 65.8 kg

DRUGS (26)
  1. SOTATERCEPT [Suspect]
     Active Substance: SOTATERCEPT
     Indication: Product used for unknown indication
     Route: 058
  2. SOTATERCEPT [Suspect]
     Active Substance: SOTATERCEPT
  3. SOTATERCEPT [Suspect]
     Active Substance: SOTATERCEPT
  4. SOTATERCEPT [Suspect]
     Active Substance: SOTATERCEPT
  5. TYVASO [Suspect]
     Active Substance: TREPROSTINIL
     Indication: Pulmonary arterial hypertension
     Dosage: CONCENTRATION: 0.6 MG/ML
     Dates: start: 20230821
  6. TYVASO [Suspect]
     Active Substance: TREPROSTINIL
     Indication: Pulmonary arterial hypertension
     Dosage: CONCENTRATION: 0.6 MG/ML; 9 BREATHS, DELIVERED BY TYVASO INHALATION?DEVICE (TD-300/A)
  7. DOXYCYCLINE HYCLATE [Concomitant]
     Active Substance: DOXYCYCLINE HYCLATE
  8. ALBUTEROL SULFATE [Concomitant]
     Active Substance: ALBUTEROL SULFATE
  9. vitamin d-400 [Concomitant]
  10. METOPROLOL SUCCINATE [Concomitant]
     Active Substance: METOPROLOL SUCCINATE
  11. OXYGEN [Concomitant]
     Active Substance: OXYGEN
  12. PREDNISONE [Concomitant]
     Active Substance: PREDNISONE
  13. LETAIRIS [Concomitant]
     Active Substance: AMBRISENTAN
  14. TORSEMIDE [Concomitant]
     Active Substance: TORSEMIDE
  15. ASPIRIN [Concomitant]
     Active Substance: ASPIRIN
  16. SPIRONOLACTONE [Concomitant]
     Active Substance: SPIRONOLACTONE
  17. MELOXICAM [Concomitant]
     Active Substance: MELOXICAM
  18. LACTASE [Concomitant]
     Active Substance: LACTASE
  19. VITAMINS [Concomitant]
     Active Substance: VITAMINS
  20. OMEPRAZOLE [Concomitant]
     Active Substance: OMEPRAZOLE
  21. POTASSIUM CHLORIDE [Concomitant]
     Active Substance: POTASSIUM CHLORIDE
  22. IMODIUM A-D [Concomitant]
     Active Substance: LOPERAMIDE HYDROCHLORIDE
  23. TYLENOL EXTRA STRENGTH [Concomitant]
     Active Substance: ACETAMINOPHEN
  24. OFEV [Concomitant]
     Active Substance: NINTEDANIB
  25. TADALAFIL [Concomitant]
     Active Substance: TADALAFIL
  26. BREO ELLIPTA [Concomitant]
     Active Substance: FLUTICASONE FUROATE\VILANTEROL TRIFENATATE

REACTIONS (2)
  - Injection site pain [Unknown]
  - Injection site vesicles [Recovered/Resolved]
